FAERS Safety Report 6694968-0 (Version None)
Quarter: 2010Q2

REPORT INFORMATION
  Report Type: 
  Country: None (occurrence: None)
  Receive Date: 20100421
  Receipt Date: 20100329
  Transmission Date: 20101027
  Serious: No
  Sender: FDA-Public Use
  Company Number: 009384

PATIENT
  Age: 60 Year
  Sex: Male

DRUGS (4)
  1. BUSULFEX [Suspect]
     Indication: STEM CELL TRANSPLANT
     Dosage: INTRAVENOUS
     Route: 042
  2. MICAFUNGIN (MICAFUNGIN) [Suspect]
  3. FLUDARABINE PHOSPHATE [Concomitant]
  4. CEFEPIME [Concomitant]

REACTIONS (8)
  - FATIGUE [None]
  - INTRAVASCULAR HAEMOLYSIS [None]
  - MULTI-ORGAN FAILURE [None]
  - PYREXIA [None]
  - RENAL FAILURE ACUTE [None]
  - TRANSPLANT REJECTION [None]
  - VERTIGO [None]
  - VOMITING [None]
